FAERS Safety Report 18468885 (Version 1)
Quarter: 2020Q4

REPORT INFORMATION
  Report Type: Spontaneous
  Country: US (occurrence: US)
  Receive Date: 20201105
  Receipt Date: 20201105
  Transmission Date: 20210114
  Serious: Yes (Life-Threatening, Hospitalization)
  Sender: FDA-Public Use
  Company Number: None

PATIENT
  Age: 65 Year
  Sex: Male
  Weight: 100 kg

DRUGS (1)
  1. KRYSTEXXA [Suspect]
     Active Substance: PEGLOTICASE
     Indication: GOUT
     Dosage: ?          OTHER FREQUENCY:Q2 WEEKS;?
     Dates: start: 20201027

REACTIONS (5)
  - Angioedema [None]
  - Type IV hypersensitivity reaction [None]
  - Anaphylactic reaction [None]
  - Hypotension [None]
  - Urticaria [None]

NARRATIVE: CASE EVENT DATE: 20201105
